FAERS Safety Report 10705272 (Version 1)
Quarter: 2015Q1

REPORT INFORMATION
  Report Type: Spontaneous
  Country: US (occurrence: US)
  Receive Date: 20150112
  Receipt Date: 20150112
  Transmission Date: 20150721
  Serious: No
  Sender: FDA-Public Use
  Company Number: US-BRISTOL-MYERS SQUIBB COMPANY-BMS-2014-007276

PATIENT
  Sex: Female
  Weight: 76.19 kg

DRUGS (1)
  1. ELIQUIS [Suspect]
     Active Substance: APIXABAN
     Indication: CATHETER PLACEMENT
     Dosage: 2.5 MG, UNK
     Route: 065

REACTIONS (1)
  - Off label use [Unknown]
